FAERS Safety Report 7441448-0 (Version None)
Quarter: 2011Q2

REPORT INFORMATION
  Report Type: 
  Country: None (occurrence: None)
  Receive Date: 20110428
  Receipt Date: 20110314
  Transmission Date: 20111010
  Serious: No
  Sender: FDA-Public Use
  Company Number: US-JNJFOC-20110306579

PATIENT
  Age: 3 Decade
  Sex: Male

DRUGS (3)
  1. INVEGA SUSTENNA [Suspect]
     Indication: SCHIZOPHRENIA
     Route: 030
  2. SEROQUEL [Concomitant]
     Indication: ILL-DEFINED DISORDER
     Route: 048
  3. PROLIXIN [Concomitant]
     Indication: SCHIZOPHRENIA
     Route: 048

REACTIONS (4)
  - PRODUCT QUALITY ISSUE [None]
  - HALLUCINATION, AUDITORY [None]
  - PARANOIA [None]
  - DRUG INEFFECTIVE [None]
